FAERS Safety Report 7609664-2 (Version None)
Quarter: 2011Q3

REPORT INFORMATION
  Report Type: 
  Country: None (occurrence: None)
  Receive Date: 20110714
  Receipt Date: 20110712
  Transmission Date: 20111222
  Serious: Yes (Other)
  Sender: FDA-Public Use
  Company Number: DK-BAYER-2011-060430

PATIENT
  Age: 46 Year
  Sex: Female
  Weight: 59 kg

DRUGS (2)
  1. ULTRAVIST 150 [Suspect]
     Indication: DIAGNOSTIC PROCEDURE
     Dosage: 90 ML, ONCE
     Route: 042
     Dates: start: 20110706, end: 20110706
  2. METOPROLOL ^GEA^ [Concomitant]
     Indication: DIAGNOSTIC PROCEDURE
     Dates: start: 20110704, end: 20110707

REACTIONS (3)
  - DERMATITIS ALLERGIC [None]
  - SWELLING FACE [None]
  - SENSORY DISTURBANCE [None]
